FAERS Safety Report 20606006 (Version 1)
Quarter: 2022Q1

REPORT INFORMATION
  Report Type: Spontaneous
  Country: IN (occurrence: IN)
  Receive Date: 20220317
  Receipt Date: 20220317
  Transmission Date: 20220423
  Serious: Yes (Other)
  Sender: FDA-Public Use
  Company Number: IN-PBT-004409

PATIENT
  Age: 25 Year
  Sex: Male

DRUGS (4)
  1. TACROLIMUS [Suspect]
     Active Substance: TACROLIMUS
     Indication: Prophylaxis against transplant rejection
     Route: 065
  2. MYCOPHENOLATE MOFETIL [Suspect]
     Active Substance: MYCOPHENOLATE MOFETIL
     Indication: Prophylaxis against transplant rejection
     Route: 065
  3. PREDNISOLONE [Suspect]
     Active Substance: PREDNISOLONE
     Indication: Prophylaxis against transplant rejection
     Route: 065
  4. DILTIAZEM [Concomitant]
     Active Substance: DILTIAZEM
     Indication: Therapeutic product effect increased
     Route: 065

REACTIONS (6)
  - Page kidney [Recovered/Resolved with Sequelae]
  - Renal tubular necrosis [Unknown]
  - Compartment syndrome [Unknown]
  - Delayed graft function [Unknown]
  - Arterial thrombosis [Recovered/Resolved with Sequelae]
  - Arterial stenosis [Recovered/Resolved with Sequelae]
